FAERS Safety Report 6626181-7 (Version None)
Quarter: 2010Q1

REPORT INFORMATION
  Report Type: 
  Country: None (occurrence: None)
  Receive Date: 20100310
  Receipt Date: 20100304
  Transmission Date: 20100710
  Serious: Yes (Other)
  Sender: FDA-Public Use
  Company Number: PHHO2010GB01426

PATIENT
  Sex: Male
  Weight: 90.7 kg

DRUGS (2)
  1. CERTICAN [Suspect]
     Indication: RENAL TRANSPLANT
     Dosage: 0.75 MG, BID
     Route: 048
     Dates: start: 20070718, end: 20100119
  2. CYCLOSPORINE [Concomitant]
     Indication: TRANSPLANT
     Dosage: UNK
     Dates: start: 20091216

REACTIONS (1)
  - PROTEINURIA [None]
